FAERS Safety Report 11635611 (Version 1)
Quarter: 2015Q4

REPORT INFORMATION
  Report Type: Spontaneous
  Country: US (occurrence: US)
  Receive Date: 20151016
  Receipt Date: 20151016
  Transmission Date: 20160304
  Serious: Yes (Other)
  Sender: FDA-Public Use
  Company Number: US-PFIZER INC-2015332150

PATIENT
  Sex: Male

DRUGS (1)
  1. SUTENT [Suspect]
     Active Substance: SUNITINIB MALATE
     Indication: NEOPLASM MALIGNANT
     Dosage: UNK

REACTIONS (11)
  - Haemorrhage [Unknown]
  - Disease progression [Unknown]
  - Mouth injury [Unknown]
  - Burning sensation [Unknown]
  - Dry skin [Unknown]
  - Diarrhoea [Unknown]
  - Swelling [Unknown]
  - Feeding disorder [Unknown]
  - Neoplasm malignant [Unknown]
  - Weight decreased [Unknown]
  - Activities of daily living impaired [Unknown]
